FAERS Safety Report 22040177 (Version 1)
Quarter: 2023Q1

REPORT INFORMATION
  Report Type: Spontaneous
  Country: IT (occurrence: IT)
  Receive Date: 20230227
  Receipt Date: 20230227
  Transmission Date: 20230417
  Serious: Yes (Hospitalization, Other)
  Sender: FDA-Public Use
  Company Number: IT-AMGEN-ITASP2023032362

PATIENT

DRUGS (2)
  1. ADALIMUMAB [Suspect]
     Active Substance: ADALIMUMAB
     Indication: Psoriatic arthropathy
     Dosage: UNK
     Route: 065
  2. ADALIMUMAB [Suspect]
     Active Substance: ADALIMUMAB
     Indication: Psoriasis

REACTIONS (10)
  - Splenomegaly [Unknown]
  - Cystitis haemorrhagic [Unknown]
  - Lupus-like syndrome [Unknown]
  - Treatment failure [Unknown]
  - Skin disorder [Unknown]
  - Gastrointestinal disorder [Unknown]
  - Asthenia [Unknown]
  - Benign respiratory tract neoplasm [Unknown]
  - Injection site reaction [Unknown]
  - Pneumonia [Unknown]
